FAERS Safety Report 8448239-2 (Version None)
Quarter: 2012Q2

REPORT INFORMATION
  Report Type: 
  Country: None (occurrence: None)
  Receive Date: 20120619
  Receipt Date: 20120615
  Transmission Date: 20120825
  Serious: Yes (Life-Threatening, Other)
  Sender: FDA-Public Use
  Company Number: PHHY2012JP051506

PATIENT
  Age: 58 Year
  Sex: Female

DRUGS (7)
  1. LEUCOVORIN CALCIUM [Suspect]
     Dosage: 60 %, UNK
     Dates: start: 20100601
  2. IRINOTECAN HCL [Suspect]
     Indication: METASTASES TO OVARY
     Dosage: 70 %, UNK
     Dates: start: 20100601
  3. IRINOTECAN HCL [Suspect]
     Dosage: 60 %, UNK
     Dates: start: 20100601
  4. LEUCOVORIN CALCIUM [Suspect]
     Indication: METASTASES TO OVARY
     Dosage: 70 %, UNK
     Dates: start: 20100601
  5. BEVACIZUMAB [Suspect]
     Indication: METASTASES TO OVARY
  6. FLUOROURACIL [Suspect]
     Indication: METASTASES TO OVARY
     Dosage: 70 %, UNK
     Dates: start: 20100601
  7. FLUOROURACIL [Suspect]
     Dosage: 60 %, UNK
     Dates: start: 20100601

REACTIONS (2)
  - NEUTROPENIA [None]
  - HAEMOGLOBIN DECREASED [None]
